FAERS Safety Report 7382930-4 (Version None)
Quarter: 2011Q1

REPORT INFORMATION
  Report Type: 
  Country: None (occurrence: None)
  Receive Date: 20110330
  Receipt Date: 20101019
  Transmission Date: 20110831
  Serious: Yes (Hospitalization, Other)
  Sender: FDA-Public Use
  Company Number: US-BAYER-200942884NA

PATIENT
  Sex: Female

DRUGS (14)
  1. OCELLA [Suspect]
     Indication: CONTRACEPTION
     Dosage: UNK
     Route: 048
     Dates: start: 20080916, end: 20081114
  2. DOXYCYCLIN [Concomitant]
     Dates: start: 20080801
  3. WARFARIN [Concomitant]
     Dates: start: 20080201, end: 20090101
  4. YAZ [Suspect]
     Indication: CONTRACEPTION
     Route: 048
     Dates: start: 20080401, end: 20080801
  5. YASMIN [Suspect]
     Indication: MENSTRUAL CYCLE MANAGEMENT
  6. YAZ [Suspect]
     Indication: MENSTRUAL CYCLE MANAGEMENT
  7. DECADRON [Concomitant]
     Dates: start: 20081101
  8. VICODIN [Concomitant]
     Dosage: UNK
     Dates: start: 20090113
  9. CIPRO [Concomitant]
     Dates: start: 20081101
  10. DEXAMETHASONE ACETATE [Concomitant]
  11. OXYCODONE [Concomitant]
     Dates: start: 20060101, end: 20080101
  12. YASMIN [Suspect]
     Indication: CONTRACEPTION
     Dosage: UNK
     Route: 048
     Dates: start: 20080428, end: 20080818
  13. TYLENOL WITH CODEIN #2 [Concomitant]
     Dates: start: 20081201
  14. HYDROCODONE BITARTRATE [Concomitant]
     Dates: start: 20040101, end: 20090101

REACTIONS (6)
  - PAIN [None]
  - DEEP VEIN THROMBOSIS [None]
  - THROMBOPHLEBITIS SUPERFICIAL [None]
  - OEDEMA PERIPHERAL [None]
  - PULMONARY EMBOLISM [None]
  - PAIN IN EXTREMITY [None]
